FAERS Safety Report 6627970-5 (Version None)
Quarter: 2010Q1

REPORT INFORMATION
  Report Type: 
  Country: None (occurrence: None)
  Receive Date: 20100311
  Receipt Date: 20090422
  Transmission Date: 20100710
  Serious: No
  Sender: FDA-Public Use
  Company Number: A0780927A

PATIENT
  Age: 29 Year
  Sex: Female

DRUGS (2)
  1. NICORETTE [Suspect]
     Dates: start: 20090422, end: 20090422
  2. NICOTINE [Suspect]

REACTIONS (2)
  - MALAISE [None]
  - PAIN [None]
